FAERS Safety Report 8603734-8 (Version None)
Quarter: 2012Q3

REPORT INFORMATION
  Report Type: 
  Country: None (occurrence: None)
  Receive Date: 20120817
  Receipt Date: 20120808
  Transmission Date: 20120928
  Serious: Yes (Other)
  Sender: FDA-Public Use
  Company Number: IT-ALLERGAN-1210893US

PATIENT
  Age: 79 Year
  Sex: Female

DRUGS (2)
  1. OZURDEX [Suspect]
     Indication: MACULAR OEDEMA
     Dosage: 0.7 MG, SINGLE
     Route: 031
  2. ANTIHYPERTENSIVES [Concomitant]

REACTIONS (2)
  - MACULOPATHY [None]
  - MACULAR HOLE [None]
